FAERS Safety Report 8260194-7 (Version None)
Quarter: 2012Q2

REPORT INFORMATION
  Report Type: 
  Country: None (occurrence: None)
  Receive Date: 20120404
  Receipt Date: 20120326
  Transmission Date: 20120825
  Serious: Yes (Hospitalization, Other)
  Sender: FDA-Public Use
  Company Number: PT-JNJFOC-20120314972

PATIENT
  Sex: Male

DRUGS (2)
  1. VENLAFAXINE [Concomitant]
     Indication: DISSOCIATIVE DISORDER
     Route: 065
  2. RISPERIDONE [Suspect]
     Indication: DISSOCIATIVE DISORDER
     Route: 065

REACTIONS (9)
  - CRANIOCEREBRAL INJURY [None]
  - CONFUSIONAL STATE [None]
  - HALLUCINATION [None]
  - PERSEVERATION [None]
  - DISORIENTATION [None]
  - OFF LABEL USE [None]
  - DELUSION [None]
  - FALL [None]
  - SOMNOLENCE [None]
